FAERS Safety Report 6781422-0 (Version None)
Quarter: 2010Q2

REPORT INFORMATION
  Report Type: 
  Country: None (occurrence: None)
  Receive Date: 20100617
  Receipt Date: 20100617
  Transmission Date: 20101027
  Serious: Yes (Other)
  Sender: FDA-Public Use
  Company Number: None

PATIENT
  Sex: Female
  Weight: 47.1741 kg

DRUGS (1)
  1. ACTONEL [Suspect]
     Indication: OSTEOPOROSIS
     Dosage: 35 MG WEEKLY ORAL
     Route: 048
     Dates: start: 20060724, end: 20100201

REACTIONS (3)
  - BONE EROSION [None]
  - TOOTH ABSCESS [None]
  - TOOTH EROSION [None]
